FAERS Safety Report 16055938 (Version 2)
Quarter: 2019Q2

REPORT INFORMATION
  Report Type: Spontaneous
  Country: PL (occurrence: PL)
  Receive Date: 20190311
  Receipt Date: 20190603
  Transmission Date: 20190711
  Serious: Yes (Hospitalization)
  Sender: FDA-Public Use
  Company Number: PL-SA-2019SA065715

PATIENT
  Age: 8 Year
  Sex: Male

DRUGS (6)
  1. CARBOCISTEINE [Concomitant]
     Active Substance: CARBOCYSTEINE
  2. FLUCONAZOLE. [Concomitant]
     Active Substance: FLUCONAZOLE
  3. MOMETASONE [Concomitant]
     Active Substance: MOMETASONE
  4. PARACETAMOL [Concomitant]
     Active Substance: ACETAMINOPHEN
  5. IBUPROFEN. [Suspect]
     Active Substance: IBUPROFEN
     Indication: UPPER RESPIRATORY TRACT INFECTION
     Dosage: UNK UNK, UNK
     Route: 065
  6. LEVOCETIRIZINE [Suspect]
     Active Substance: LEVOCETIRIZINE
     Indication: RHINITIS ALLERGIC
     Dosage: UNK UNK, UNK
     Route: 045

REACTIONS (5)
  - Fixed eruption [Recovered/Resolved]
  - Rash erythematous [Recovered/Resolved]
  - Skin discolouration [Recovered/Resolved]
  - Drug eruption [Recovered/Resolved]
  - Condition aggravated [Recovered/Resolved]
